FAERS Safety Report 7215781-1 (Version None)
Quarter: 2011Q1

REPORT INFORMATION
  Report Type: 
  Country: None (occurrence: None)
  Receive Date: 20110107
  Receipt Date: 20110103
  Transmission Date: 20110831
  Serious: Yes (Death, Hospitalization)
  Sender: FDA-Public Use
  Company Number: US-PFIZER INC-2010146666

PATIENT
  Sex: Female

DRUGS (13)
  1. MEGACE [Concomitant]
     Dosage: UNK
     Dates: start: 20101020
  2. HYDROXYZINE [Concomitant]
     Dosage: UNK
     Dates: start: 20101020
  3. PROMETHAZINE HYDROCHLORIDE [Concomitant]
     Dosage: UNK
     Dates: start: 20101020
  4. PRAVACHOL [Concomitant]
     Dosage: UNK
     Dates: start: 20101020
  5. PEPCID AC [Concomitant]
     Dosage: UNK
     Dates: start: 20101020
  6. ATENOLOL [Concomitant]
     Dosage: UNK
     Dates: start: 20101020
  7. ZOFRAN [Concomitant]
     Dosage: UNK
     Dates: start: 20101020
  8. HYDROCHLOROTHIAZIDE [Concomitant]
     Dosage: UNK
     Dates: start: 20101020
  9. MULTI-VITAMINS [Concomitant]
     Dosage: UNK
     Dates: start: 20101020
  10. COMPAZINE [Concomitant]
     Dosage: UNK
     Dates: start: 20101020
  11. ADRIAMYCIN PFS [Suspect]
     Indication: ENDOMETRIAL CANCER
     Dosage: 120 MG, UNK
     Route: 042
     Dates: start: 20101020
  12. IRON [Concomitant]
     Dosage: UNK
     Dates: start: 20101020
  13. MAGIC MOUTHWASH [Concomitant]
     Dosage: UNK
     Dates: start: 20101020

REACTIONS (5)
  - DISEASE PROGRESSION [None]
  - ENDOMETRIAL CANCER [None]
  - DEHYDRATION [None]
  - URINARY TRACT INFECTION [None]
  - RENAL FAILURE ACUTE [None]
